FAERS Safety Report 4757978-6 (Version None)
Quarter: 2005Q3

REPORT INFORMATION
  Report Type: 
  Country: None (occurrence: None)
  Receive Date: 20050830
  Receipt Date: 20050819
  Transmission Date: 20060218
  Serious: Yes (Other)
  Sender: FDA-Public Use
  Company Number: 200513370BCC

PATIENT
  Age: 73 Year
  Sex: Male
  Weight: 113.3993 kg

DRUGS (3)
  1. ALKA-SELTZER PLUS EFFERVESCENT COLD - ORANGE ZEST [Suspect]
     Indication: NASOPHARYNGITIS
     Dosage: 500 MG, ONCE, ORAL
     Route: 048
     Dates: start: 20050801
  2. ATENOLOL [Concomitant]
  3. INSULIN [Concomitant]

REACTIONS (2)
  - BLOOD GLUCOSE INCREASED [None]
  - CONDITION AGGRAVATED [None]
